FAERS Safety Report 8433774-3 (Version None)
Quarter: 2012Q2

REPORT INFORMATION
  Report Type: 
  Country: None (occurrence: None)
  Receive Date: 20120613
  Receipt Date: 20120604
  Transmission Date: 20120825
  Serious: Yes (Other)
  Sender: FDA-Public Use
  Company Number: US-PFIZER INC-2010076655

PATIENT
  Sex: Female
  Weight: 90.7 kg

DRUGS (12)
  1. NEURONTIN [Suspect]
     Indication: FIBROMYALGIA
     Dosage: 600 MG, 1X/DAY
  2. LASIX [Concomitant]
     Dosage: UNK
  3. SYNTHROID [Concomitant]
     Indication: THYROID DISORDER
     Dosage: UNK
  4. LEXAPRO [Concomitant]
     Dosage: UNK
  5. GABAPENTIN [Suspect]
     Dosage: 600 MG, 3X/DAY
  6. LISINOPRIL [Concomitant]
     Dosage: UNK
  7. ACETYLSALICYLIC ACID [Concomitant]
     Dosage: UNK
  8. FLEXERIL [Concomitant]
     Dosage: 10 MG, UNK
  9. LYRICA [Suspect]
     Indication: FIBROMYALGIA
     Dosage: UNK
     Dates: start: 20080101, end: 20080101
  10. GABAPENTIN [Suspect]
     Indication: FIBROMYALGIA
     Dosage: 600 MG, 1X/DAY
  11. SIMVASTATIN [Concomitant]
     Dosage: UNK
  12. PLAVIX [Concomitant]
     Indication: CEREBROVASCULAR ACCIDENT
     Dosage: UNK

REACTIONS (19)
  - HALLUCINATION [None]
  - CARDIAC DISORDER [None]
  - DIZZINESS [None]
  - RASH [None]
  - HYPERSENSITIVITY [None]
  - COGNITIVE DISORDER [None]
  - ABNORMAL DREAMS [None]
  - CONSTIPATION [None]
  - FATIGUE [None]
  - FIBROMYALGIA [None]
  - NIGHTMARE [None]
  - IMPAIRED WORK ABILITY [None]
  - SOMNOLENCE [None]
  - PAIN [None]
  - CEREBROVASCULAR ACCIDENT [None]
  - DRUG INEFFECTIVE [None]
  - FEELING ABNORMAL [None]
  - MEMORY IMPAIRMENT [None]
  - ALOPECIA [None]
